FAERS Safety Report 5737050-9 (Version None)
Quarter: 2008Q2

REPORT INFORMATION
  Report Type: 
  Country: None (occurrence: None)
  Receive Date: 20080512
  Receipt Date: 20080512
  Transmission Date: 20081010
  Serious: Yes (Other)
  Sender: FDA-Public Use
  Company Number: None

PATIENT
  Age: 73 Year
  Sex: Male
  Weight: 65.318 kg

DRUGS (1)
  1. FLOMAX [Suspect]
     Indication: BENIGN PROSTATIC HYPERPLASIA
     Dosage: 1 PER DAY
     Dates: start: 20080225, end: 20080325

REACTIONS (4)
  - ERYTHEMA [None]
  - MUSCLE TWITCHING [None]
  - PRURITUS [None]
  - RASH MACULO-PAPULAR [None]
